FAERS Safety Report 21450090 (Version 2)
Quarter: 2022Q4

REPORT INFORMATION
  Report Type: Spontaneous
  Country: JP (occurrence: None)
  Receive Date: 20221013
  Receipt Date: 20221019
  Transmission Date: 20230113
  Serious: Yes (Hospitalization, Other)
  Sender: FDA-Public Use
  Company Number: 2022A319818

PATIENT
  Age: 89 Year
  Sex: Female

DRUGS (2)
  1. DAPAGLIFLOZIN [Suspect]
     Active Substance: DAPAGLIFLOZIN
     Indication: Cardiac failure chronic
     Dosage: DOSE UNKNOWN
     Route: 048
     Dates: start: 20210707, end: 20220914
  2. CIFENLINE [Suspect]
     Active Substance: CIFENLINE
     Indication: Cardiac failure chronic
     Dosage: DOSE UNKNOWN, MONING AND EVENING
     Route: 048
     Dates: start: 20220822, end: 20220915

REACTIONS (2)
  - Hypoglycaemia [Recovered/Resolved]
  - Hypoglycaemic coma [Recovered/Resolved]

NARRATIVE: CASE EVENT DATE: 20220913
